FAERS Safety Report 19584908 (Version 4)
Quarter: 2022Q2

REPORT INFORMATION
  Report Type: Report from Study
  Country: US (occurrence: US)
  Receive Date: 20210720
  Receipt Date: 20220621
  Transmission Date: 20220720
  Serious: Yes (Hospitalization, Other)
  Sender: FDA-Public Use
  Company Number: NVSC2021US153761

PATIENT
  Sex: Male

DRUGS (1)
  1. ZOLGENSMA [Suspect]
     Active Substance: ONASEMNOGENE ABEPARVOVEC-XIOI
     Indication: Spinal muscular atrophy
     Dosage: UNK, ONCE/SINGLE
     Route: 042
     Dates: start: 20210702, end: 20210702

REACTIONS (11)
  - Respiratory syncytial virus infection [Unknown]
  - Aspiration [Unknown]
  - Eating disorder [Unknown]
  - Weight decreased [Unknown]
  - Platelet count decreased [Unknown]
  - Vomiting [Unknown]
  - Hepatic enzyme increased [Unknown]
  - Pyrexia [Unknown]
  - Scarlet fever [Unknown]
  - Rash [Recovering/Resolving]
  - Streptococcal infection [Unknown]
